FAERS Safety Report 24183335 (Version 2)
Quarter: 2024Q3

REPORT INFORMATION
  Report Type: Spontaneous
  Country: CN (occurrence: CN)
  Receive Date: 20240807
  Receipt Date: 20240809
  Transmission Date: 20241017
  Serious: Yes (Life-Threatening, Hospitalization)
  Sender: BAYER
  Company Number: CN-BAYER-2024A112467

PATIENT
  Age: 29 Year
  Sex: Male

DRUGS (2)
  1. GADOBUTROL [Suspect]
     Active Substance: GADOBUTROL
     Indication: Meningitis tuberculous
     Dosage: UNK UNK, ONCE FOR SEVERAL TIMES
     Dates: start: 2024, end: 2024
  2. GADOBUTROL [Suspect]
     Active Substance: GADOBUTROL
     Indication: Meningitis tuberculous
     Dosage: 0.1 ML/KG, ONCE
     Dates: start: 20240801, end: 20240801

REACTIONS (5)
  - Apnoea [None]
  - Coma [Not Recovered/Not Resolved]
  - Dyspnoea [None]
  - Speech disorder [None]
  - Pyrexia [Not Recovered/Not Resolved]

NARRATIVE: CASE EVENT DATE: 20240801
